FAERS Safety Report 18362865 (Version 1)
Quarter: 2020Q4

REPORT INFORMATION
  Report Type: Spontaneous
  Country: US (occurrence: US)
  Receive Date: 20201009
  Receipt Date: 20201009
  Transmission Date: 20210114
  Serious: Yes (Hospitalization)
  Sender: FDA-Public Use
  Company Number: US-HETERO-HET2020US01102

PATIENT
  Age: 96 Year
  Sex: Female
  Weight: 45 kg

DRUGS (10)
  1. METOPROLOL. [Suspect]
     Active Substance: METOPROLOL
     Indication: PRODUCT USED FOR UNKNOWN INDICATION
     Dosage: 50 MG, NIGHTLY FOR TWO YEARS
     Route: 065
  2. DONEPEZIL. [Suspect]
     Active Substance: DONEPEZIL
     Indication: PRODUCT USED FOR UNKNOWN INDICATION
     Dosage: 5 MG TWO YEARS AGO
     Route: 065
  3. ATORVASTATIN [Concomitant]
     Active Substance: ATORVASTATIN
     Indication: PRODUCT USED FOR UNKNOWN INDICATION
     Dosage: 40 MG, QD, NIGHTLY
     Route: 065
  4. DONEPEZIL. [Suspect]
     Active Substance: DONEPEZIL
     Dosage: HALF DOSE 25 MG NIGHTLY AND 5MG DAILY
     Route: 065
  5. ESOMEPRAZOLE. [Concomitant]
     Active Substance: ESOMEPRAZOLE MAGNESIUM
     Indication: PRODUCT USED FOR UNKNOWN INDICATION
     Dosage: 40 MG, QD
     Route: 065
  6. METOPROLOL. [Suspect]
     Active Substance: METOPROLOL
     Dosage: 50 MG DOSES WERE PRESUMED TO BE GIVEN EVENING AND MORNING
     Route: 065
  7. METOPROLOL. [Suspect]
     Active Substance: METOPROLOL
     Dosage: AT HALF DOSE, 25MG NIGHTLY AND 5MG DAILY
     Route: 065
  8. ASPIRIN 81 [Concomitant]
     Active Substance: ASPIRIN
     Indication: PRODUCT USED FOR UNKNOWN INDICATION
     Dosage: 81 MG, QD
     Route: 065
  9. DONEPEZIL. [Suspect]
     Active Substance: DONEPEZIL
     Dosage: 10 MG, QD PRESUMED  TO BE GIVEN THE EVENGING AND MORNING
     Route: 065
  10. METOPROLOL. [Suspect]
     Active Substance: METOPROLOL
     Dosage: 25 MG NIGHTLY AND FURTHER DECREASE DONEPEZIL TO 2.5 MG DAILY
     Route: 065

REACTIONS (2)
  - Cholinergic syndrome [Unknown]
  - Toxicity to various agents [Unknown]
